FAERS Safety Report 7465727-6 (Version None)
Quarter: 2011Q2

REPORT INFORMATION
  Report Type: 
  Country: None (occurrence: None)
  Receive Date: 20110509
  Receipt Date: 20110504
  Transmission Date: 20111010
  Serious: Yes (Other)
  Sender: FDA-Public Use
  Company Number: D0071267A

PATIENT
  Sex: Male

DRUGS (1)
  1. VIANI [Suspect]
     Indication: ASTHMA
     Route: 055

REACTIONS (2)
  - PRODUCT QUALITY ISSUE [None]
  - ASTHMA [None]
